FAERS Safety Report 6614217-9 (Version None)
Quarter: 2010Q1

REPORT INFORMATION
  Report Type: 
  Country: None (occurrence: None)
  Receive Date: 20100304
  Receipt Date: 20100223
  Transmission Date: 20100710
  Serious: Yes (Other)
  Sender: FDA-Public Use
  Company Number: GB-PFIZER INC-2010023061

PATIENT
  Age: 49 Year
  Sex: Female

DRUGS (5)
  1. MARAVIROC [Suspect]
     Indication: HIV INFECTION
     Route: 048
  2. PREZISTA [Suspect]
     Indication: HIV INFECTION
     Route: 048
  3. ETRAVIRINE [Suspect]
     Indication: HIV INFECTION
     Route: 048
  4. RALTEGRAVIR [Suspect]
     Indication: HIV INFECTION
     Route: 048
  5. TRUVADA [Suspect]
     Indication: HIV INFECTION
     Route: 048

REACTIONS (3)
  - HYPERLIPIDAEMIA [None]
  - PROTEINURIA [None]
  - TYPE 2 DIABETES MELLITUS [None]
